FAERS Safety Report 8188156-9 (Version None)
Quarter: 2012Q1

REPORT INFORMATION
  Report Type: 
  Country: None (occurrence: None)
  Receive Date: 20120306
  Receipt Date: 20120227
  Transmission Date: 20120608
  Serious: Yes (Other)
  Sender: FDA-Public Use
  Company Number: US-ABBOTT-12P-163-0909372-00

PATIENT
  Sex: Female
  Weight: 76.272 kg

DRUGS (5)
  1. HUMIRA [Suspect]
     Indication: CROHN'S DISEASE
     Dates: start: 20100601
  2. EFFEXOR [Concomitant]
     Indication: DEPRESSION
  3. IMURAN [Concomitant]
     Indication: CROHN'S DISEASE
     Dosage: 50MG FOUR ONCE DAILY
  4. ZESTRIL [Concomitant]
     Indication: PRODUCT USED FOR UNKNOWN INDICATION
  5. NORVASC [Concomitant]
     Indication: HYPERTENSION

REACTIONS (8)
  - DYSPHAGIA [None]
  - THYROID CYST [None]
  - ORAL CANDIDIASIS [None]
  - ORAL FUNGAL INFECTION [None]
  - FUNGAL INFECTION [None]
  - EAR INFECTION FUNGAL [None]
  - PAIN [None]
  - THYROID NEOPLASM [None]
